FAERS Safety Report 24063855 (Version 1)
Quarter: 2024Q3

REPORT INFORMATION
  Report Type: Spontaneous
  Country: BE (occurrence: BE)
  Receive Date: 20240709
  Receipt Date: 20240709
  Transmission Date: 20241017
  Serious: Yes (Other)
  Sender: AUROBINDO
  Company Number: BE-FAMHP-DHH-N2024-122313

PATIENT
  Age: 74 Year
  Sex: Male
  Weight: 100 kg

DRUGS (8)
  1. SILODOSIN [Interacting]
     Active Substance: SILODOSIN
     Indication: Benign prostatic hyperplasia
     Dosage: 1 DOSAGE FORM, ONCE A DAY
     Route: 048
     Dates: start: 20240429, end: 20240623
  2. TRAMADOL [Interacting]
     Active Substance: TRAMADOL\TRAMADOL HYDROCHLORIDE
     Indication: Product used for unknown indication
     Dosage: STELSELMATIG ^S MORGENS EN ^S AVONDS INGENOMEN, VOOR REEDS JAREN (TAKEN SYSTEMICALLY MORING AND EVEN
     Route: 065
  3. TRAMADOL HYDROCHLORIDE [Interacting]
     Active Substance: TRAMADOL HYDROCHLORIDE
     Indication: Product used for unknown indication
     Dosage: 1 DOSAGE FORM, AS NECESSARY (ENKEL INDIEN NODIG, MAAR VOORAL OVERDAG, VOOR REEDS JAREN INGENOMEN (ON
     Route: 065
  4. ALGOSTASE [Concomitant]
     Indication: Product used for unknown indication
     Dosage: 1 GRAM
     Route: 065
  5. LIPITOR [Concomitant]
     Active Substance: ATORVASTATIN CALCIUM
     Indication: Product used for unknown indication
     Dosage: UNK
     Route: 065
  6. BISOPROLOL [Concomitant]
     Active Substance: BISOPROLOL\BISOPROLOL FUMARATE
     Indication: Product used for unknown indication
     Dosage: UNK
     Route: 065
  7. Pantomed [Concomitant]
     Indication: Product used for unknown indication
     Dosage: UNK
     Route: 065
  8. ASPIRIN [Concomitant]
     Active Substance: ASPIRIN
     Indication: Product used for unknown indication
     Dosage: UNK
     Route: 065

REACTIONS (3)
  - Hallucination [Recovering/Resolving]
  - Nightmare [Recovering/Resolving]
  - Drug interaction [Recovering/Resolving]
